FAERS Safety Report 7443791-8 (Version None)
Quarter: 2011Q2

REPORT INFORMATION
  Report Type: 
  Country: None (occurrence: None)
  Receive Date: 20110428
  Receipt Date: 20110418
  Transmission Date: 20111010
  Serious: Yes (Hospitalization)
  Sender: FDA-Public Use
  Company Number: FR-MERCK-1104FRA00105

PATIENT
  Age: 63 Year
  Sex: Male

DRUGS (5)
  1. PRIMAXIN [Suspect]
     Route: 042
     Dates: end: 20100406
  2. VALPROATE SODIUM [Concomitant]
     Route: 065
  3. CIPROFLOXACIN HYDROCHLORIDE [Suspect]
     Route: 042
     Dates: end: 20100408
  4. METHYLPREDNISOLONE SODIUM SUCCINATE [Concomitant]
     Route: 065
  5. CLONAZEPAM [Concomitant]
     Route: 065

REACTIONS (1)
  - COMPLEX PARTIAL SEIZURES [None]
